FAERS Safety Report 20702241 (Version 1)
Quarter: 2022Q2

REPORT INFORMATION
  Report Type: Report from Study
  Country: US (occurrence: US)
  Receive Date: 20220412
  Receipt Date: 20220412
  Transmission Date: 20220721
  Serious: Yes (Other)
  Sender: FDA-Public Use
  Company Number: US-MYLANLABS-2022M1026640

PATIENT
  Age: 81 Year
  Sex: Female

DRUGS (7)
  1. VANCOMYCIN [Suspect]
     Active Substance: VANCOMYCIN
     Indication: Staphylococcal infection
     Dosage: UNK; FORTIFIED EVERY 2 HOURS FOR 1 MONTH FOLLOWED BY 4 TIMES DAILY FOR 2 WEEKS
     Route: 061
  2. MOXIFLOXACIN [Suspect]
     Active Substance: MOXIFLOXACIN
     Indication: Neurotrophic keratopathy
     Dosage: UNK
     Route: 061
  3. LATANOPROST [Suspect]
     Active Substance: LATANOPROST
     Indication: Neurotrophic keratopathy
     Dosage: UNK
     Route: 061
  4. FML [Suspect]
     Active Substance: FLUOROMETHOLONE
     Indication: Neurotrophic keratopathy
     Dosage: UNK
     Route: 061
  5. COMBIGAN [Suspect]
     Active Substance: BRIMONIDINE TARTRATE\TIMOLOL MALEATE
     Indication: Neurotrophic keratopathy
     Dosage: UNK
     Route: 061
  6. GENTAMICIN [Suspect]
     Active Substance: GENTAMICIN
     Indication: Staphylococcal infection
     Dosage: UNK
     Route: 061
  7. CENEGERMIN-BKBJ [Suspect]
     Active Substance: CENEGERMIN-BKBJ
     Indication: Neurotrophic keratopathy
     Dosage: 1 DROP; [DRP] (DROP (1/12 MILLILITRE)); 6 TIMES/DAY FOR 8 WEEKS
     Route: 061

REACTIONS (5)
  - Calcinosis [Not Recovered/Not Resolved]
  - Keratopathy [Not Recovered/Not Resolved]
  - Corneal opacity [Not Recovered/Not Resolved]
  - Drug ineffective [Unknown]
  - Off label use [Unknown]
